FAERS Safety Report 6446862-8 (Version None)
Quarter: 2009Q4

REPORT INFORMATION
  Report Type: 
  Country: None (occurrence: None)
  Receive Date: 20091119
  Receipt Date: 20091110
  Transmission Date: 20100525
  Serious: Yes (Hospitalization)
  Sender: FDA-Public Use
  Company Number: DE-BRISTOL-MYERS SQUIBB COMPANY-14850382

PATIENT
  Age: 66 Year
  Sex: Female

DRUGS (4)
  1. CISPLATIN [Suspect]
     Indication: CHEMOTHERAPY
     Route: 033
  2. VERAPAMIL [Concomitant]
     Indication: HYPERTENSION
  3. OLANZAPINE [Concomitant]
     Indication: DEPRESSION
  4. FLUOXETINE [Concomitant]
     Indication: DEPRESSION

REACTIONS (2)
  - ELECTROCARDIOGRAM QT PROLONGED [None]
  - VENTRICULAR TACHYCARDIA [None]
